FAERS Safety Report 8103871-0 (Version None)
Quarter: 2012Q1

REPORT INFORMATION
  Report Type: 
  Country: None (occurrence: None)
  Receive Date: 20120201
  Receipt Date: 20120125
  Transmission Date: 20120608
  Serious: Yes (Other)
  Sender: FDA-Public Use
  Company Number: ZA-PFIZER INC-2012022395

PATIENT
  Sex: Female

DRUGS (1)
  1. AROMASIN [Suspect]

REACTIONS (3)
  - DERMATITIS [None]
  - BLISTER [None]
  - SKIN REACTION [None]
